FAERS Safety Report 8136900-9 (Version None)
Quarter: 2012Q1

REPORT INFORMATION
  Report Type: 
  Country: None (occurrence: None)
  Receive Date: 20120214
  Receipt Date: 20120201
  Transmission Date: 20120608
  Serious: Yes (Other)
  Sender: FDA-Public Use
  Company Number: US-RB-036957-12

PATIENT
  Age: 27 Year
  Sex: Male

DRUGS (1)
  1. SUBOXONE [Suspect]
     Indication: DRUG DEPENDENCE
     Dosage: 12-16 MG DAILY
     Route: 060
     Dates: start: 20110801

REACTIONS (6)
  - LOSS OF CONSCIOUSNESS [None]
  - HEADACHE [None]
  - WRONG TECHNIQUE IN DRUG USAGE PROCESS [None]
  - OFF LABEL USE [None]
  - CHEST INJURY [None]
  - CONTUSION [None]
